FAERS Safety Report 9300957 (Version 1)
Quarter: 2013Q2

REPORT INFORMATION
  Report Type: Spontaneous
  Country: US (occurrence: US)
  Receive Date: 20130521
  Receipt Date: 20130521
  Transmission Date: 20140414
  Serious: Yes (Other)
  Sender: FDA-Public Use
  Company Number: US-JNJFOC-20130408502

PATIENT
  Age: 58 Year
  Sex: Female
  Weight: 62.6 kg

DRUGS (8)
  1. XARELTO [Suspect]
     Indication: CEREBROVASCULAR ACCIDENT PROPHYLAXIS
     Route: 048
     Dates: start: 20130412, end: 20130423
  2. XARELTO [Suspect]
     Indication: ATRIAL FIBRILLATION
     Route: 048
     Dates: start: 20130412, end: 20130423
  3. METFORMIN [Concomitant]
     Indication: DIABETES MELLITUS
     Route: 065
  4. LOPRESSOR [Concomitant]
     Indication: HYPERTENSION
     Route: 065
  5. LISINOPRIL [Concomitant]
     Indication: HYPERTENSION
     Route: 065
  6. HEPARIN [Concomitant]
     Route: 065
     Dates: start: 20130411, end: 20130412
  7. VITAMIN D [Concomitant]
     Route: 065
  8. CALCIUM [Concomitant]
     Route: 065

REACTIONS (2)
  - Anxiety [Recovering/Resolving]
  - Asthenia [Recovering/Resolving]
